FAERS Safety Report 8071488-2 (Version None)
Quarter: 2012Q1

REPORT INFORMATION
  Report Type: 
  Country: None (occurrence: None)
  Receive Date: 20120125
  Receipt Date: 20120117
  Transmission Date: 20120608
  Serious: Yes (Congenital Anomaly, Other)
  Sender: FDA-Public Use
  Company Number: US-PFIZER INC-2012015740

PATIENT
  Sex: Female
  Weight: 2.98 kg

DRUGS (2)
  1. CYCLOPHOSPHAMIDE [Suspect]
     Indication: BREAST CANCER
     Dosage: 2100 MG, UNK
     Route: 064
     Dates: start: 19790519, end: 19790906
  2. DOXORUBICIN HCL [Suspect]
     Indication: BREAST CANCER
     Dosage: 325 MG, UNK
     Route: 064
     Dates: start: 19790519, end: 19790906

REACTIONS (6)
  - CARDIAC MURMUR [None]
  - HEART SOUNDS ABNORMAL [None]
  - FISTULA [None]
  - ANAL ATRESIA [None]
  - HEAD CIRCUMFERENCE ABNORMAL [None]
  - MATERNAL EXPOSURE TIMING UNSPECIFIED [None]
